FAERS Safety Report 24322533 (Version 1)
Quarter: 2024Q3

REPORT INFORMATION
  Report Type: Report from Study
  Country: US (occurrence: US)
  Receive Date: 20240916
  Receipt Date: 20240916
  Transmission Date: 20241017
  Serious: No
  Sender: ROCHE
  Company Number: US-ROCHE-10000081346

PATIENT
  Age: 37 Year
  Sex: Female
  Weight: 83.91 kg

DRUGS (2)
  1. OCREVUS [Suspect]
     Active Substance: OCRELIZUMAB
     Indication: Multiple sclerosis
     Dosage: LAST OCREVUS INFUSION WAS RECEIVED ON 30-AUG-2024?RECEIVED HER LAST OCREVUS DOSE ON -FEB-2024 (BEFOR
     Route: 042
     Dates: start: 202001
  2. UBRELVY [Concomitant]
     Active Substance: UBROGEPANT
     Indication: Migraine
     Dosage: 100 MG UP TO 200 MG AS NEEDED
     Dates: start: 2022

REACTIONS (2)
  - COVID-19 [Recovered/Resolved]
  - Off label use [Unknown]

NARRATIVE: CASE EVENT DATE: 20240806
